FAERS Safety Report 12281342 (Version 2)
Quarter: 2016Q3

REPORT INFORMATION
  Report Type: Report from Study
  Country: CZ (occurrence: CZ)
  Receive Date: 20160419
  Receipt Date: 20160712
  Transmission Date: 20161109
  Serious: Yes (Death)
  Sender: FDA-Public Use
  Company Number: CZ-ABBVIE-16P-217-1606449-00

PATIENT
  Sex: Male
  Weight: 62 kg

DRUGS (1)
  1. DUODOPA [Suspect]
     Active Substance: CARBIDOPA\LEVODOPA
     Indication: PARKINSON^S DISEASE
     Dosage: MORNING DOSE: 9.8 ML; MAINTENANCE DOSE: 4.5 ML/H; EXTRA DOSE:
     Route: 050

REACTIONS (1)
  - Pneumonia [Fatal]
